FAERS Safety Report 5763616-6 (Version None)
Quarter: 2008Q2

REPORT INFORMATION
  Report Type: 
  Country: None (occurrence: None)
  Receive Date: 20080610
  Receipt Date: 20080605
  Transmission Date: 20081010
  Serious: Yes (Other)
  Sender: FDA-Public Use
  Company Number: PHNU2008DE02022

PATIENT
  Sex: Female

DRUGS (1)
  1. ESTRAGEST TTS [Suspect]
     Dosage: 2 DF, QW
     Route: 062
     Dates: start: 20080509, end: 20080509

REACTIONS (4)
  - DRY MOUTH [None]
  - HEADACHE [None]
  - SYNCOPE [None]
  - VISUAL DISTURBANCE [None]
